FAERS Safety Report 25351047 (Version 3)
Quarter: 2025Q2

REPORT INFORMATION
  Report Type: Spontaneous
  Country: US (occurrence: US)
  Receive Date: 20250523
  Receipt Date: 20250604
  Transmission Date: 20250717
  Serious: Yes (Other)
  Sender: VIIV
  Company Number: US-VIIV HEALTHCARE-US2025062227

PATIENT

DRUGS (4)
  1. CABENUVA [Suspect]
     Active Substance: CABOTEGRAVIR\RILPIVIRINE
     Indication: Product used for unknown indication
     Dates: start: 20250430
  2. CABENUVA [Suspect]
     Active Substance: CABOTEGRAVIR\RILPIVIRINE
  3. CABENUVA [Suspect]
     Active Substance: CABOTEGRAVIR\RILPIVIRINE
  4. BIKTARVY [Concomitant]
     Active Substance: BICTEGRAVIR SODIUM\EMTRICITABINE\TENOFOVIR ALAFENAMIDE FUMARATE
     Indication: Product used for unknown indication

REACTIONS (5)
  - Rash pruritic [Recovering/Resolving]
  - Toxic epidermal necrolysis [Unknown]
  - Erythema multiforme [Unknown]
  - Drug hypersensitivity [Unknown]
  - Erythema annulare [Recovered/Resolved]

NARRATIVE: CASE EVENT DATE: 20250501
